FAERS Safety Report 9831588 (Version 2)
Quarter: 2014Q1

REPORT INFORMATION
  Report Type: Spontaneous
  Country: US (occurrence: US)
  Receive Date: 20140121
  Receipt Date: 20140205
  Transmission Date: 20141002
  Serious: No
  Sender: FDA-Public Use
  Company Number: US-PFIZER INC-2014016572

PATIENT
  Age: 54 Year
  Sex: Male
  Weight: 90.7 kg

DRUGS (5)
  1. NEURONTIN [Suspect]
     Indication: TRIGEMINAL NEURALGIA
     Dosage: UNK
  2. DILANTIN-125 [Suspect]
     Indication: TRIGEMINAL NEURALGIA
     Dosage: UNK
  3. DEPAKOTE [Suspect]
     Indication: TRIGEMINAL NEURALGIA
     Dosage: UNK
  4. TEGRETOL [Suspect]
     Indication: TRIGEMINAL NEURALGIA
     Dosage: UNK
  5. TRAMADOL [Concomitant]
     Indication: PAIN
     Dosage: 50 MG, 1X/DAY

REACTIONS (1)
  - Drug ineffective [Unknown]
